FAERS Safety Report 5690657-X (Version None)
Quarter: 2008Q2

REPORT INFORMATION
  Report Type: 
  Country: None (occurrence: None)
  Receive Date: 20080401
  Receipt Date: 20080319
  Transmission Date: 20081010
  Serious: Yes (Hospitalization)
  Sender: FDA-Public Use
  Company Number: SE-JNJFOC-20080305287

PATIENT
  Age: 65 Year
  Sex: Male

DRUGS (3)
  1. IBUPROFEN [Suspect]
  2. IBUPROFEN [Suspect]
     Indication: NASOPHARYNGITIS
  3. DIGOXIN [Concomitant]

REACTIONS (2)
  - CARDIAC FAILURE [None]
  - FLUID RETENTION [None]
